FAERS Safety Report 8068769-5 (Version None)
Quarter: 2012Q1

REPORT INFORMATION
  Report Type: 
  Country: None (occurrence: None)
  Receive Date: 20120124
  Receipt Date: 20120104
  Transmission Date: 20120608
  Serious: No
  Sender: FDA-Public Use
  Company Number: US-AMGEN-USASP2011059462

PATIENT
  Sex: Female
  Weight: 57 kg

DRUGS (5)
  1. AMBIEN [Concomitant]
  2. METHOCARBAMOL [Concomitant]
  3. SIMVASTATIN [Concomitant]
  4. PROLIA [Suspect]
     Indication: OSTEOPOROSIS POSTMENOPAUSAL
     Dosage: 60 MG, Q6MO
     Route: 058
     Dates: start: 20110926
  5. TRAMADOL HCL [Concomitant]
     Dosage: UNK

REACTIONS (6)
  - BACK PAIN [None]
  - ABDOMINAL PAIN LOWER [None]
  - PAIN IN EXTREMITY [None]
  - MUSCULOSKELETAL PAIN [None]
  - ABDOMINAL PAIN [None]
  - DIARRHOEA [None]
